FAERS Safety Report 6242695-6 (Version None)
Quarter: 2009Q2

REPORT INFORMATION
  Report Type: 
  Country: None (occurrence: None)
  Receive Date: 20090624
  Receipt Date: 20090617
  Transmission Date: 20091009
  Serious: Yes (Life-Threatening, Hospitalization)
  Sender: FDA-Public Use
  Company Number: US-ROCHE-550285

PATIENT
  Sex: Male
  Weight: 54.3 kg

DRUGS (10)
  1. CAPECITABINE [Suspect]
     Route: 048
     Dates: start: 20071024, end: 20080312
  2. BEVACIZUMAB [Suspect]
     Route: 042
     Dates: start: 20071024, end: 20080312
  3. OXALIPLATIN [Suspect]
     Route: 042
     Dates: start: 20071024, end: 20080312
  4. IRON SUPPLEMENT [Concomitant]
     Dosage: DRUG NAME REPORTED AS IRON
     Route: 048
     Dates: start: 20070810
  5. VICODIN [Concomitant]
     Dosage: STRENGTH: 5/500 MG TDD: OF 6 HOURS.
     Dates: start: 20070926
  6. IMODIUM [Concomitant]
     Dosage: TDD: OF 4 HOURS.
     Dates: start: 20071017
  7. BACTRIM [Concomitant]
     Dosage: TDD: QD.
     Dates: start: 20071227
  8. ACIDOPHILUS [Concomitant]
     Dates: start: 20080213
  9. MULTI-VITAMIN [Concomitant]
     Dates: start: 20080130
  10. COMPAZINE [Concomitant]
     Dosage: DRUG NAME REPORTED AS COMPAZENE.
     Dates: start: 20071017

REACTIONS (1)
  - HEPATIC ENCEPHALOPATHY [None]
